FAERS Safety Report 8126868-3 (Version None)
Quarter: 2012Q1

REPORT INFORMATION
  Report Type: 
  Country: None (occurrence: None)
  Receive Date: 20120210
  Receipt Date: 20120130
  Transmission Date: 20120608
  Serious: Yes (Other)
  Sender: FDA-Public Use
  Company Number: US-JNJCP-30000088677

PATIENT
  Age: 74 Year
  Sex: Male
  Weight: 82 kg

DRUGS (2)
  1. LATANOPAROST  (  EYE DROPS ) [Concomitant]
     Dosage: ONCE A DAY
     Route: 047
  2. NTG MEN TRIPLE PROTECT FACE LOTION SPF20 USA 070501020135 [Suspect]
     Dosage: A DAB SIZE AMOUNT, ONCE PER DAY
     Route: 061

REACTIONS (1)
  - INTRAOCULAR PRESSURE INCREASED [None]
